FAERS Safety Report 6041536-X (Version None)
Quarter: 2009Q1

REPORT INFORMATION
  Report Type: 
  Country: None (occurrence: None)
  Receive Date: 20090116
  Receipt Date: 20081022
  Transmission Date: 20090719
  Serious: No
  Sender: FDA-Public Use
  Company Number: US-BRISTOL-MYERS SQUIBB COMPANY-14379515

PATIENT
  Age: 88 Year
  Sex: Female
  Weight: 61 kg

DRUGS (7)
  1. ABILIFY [Suspect]
     Indication: ANXIETY
     Dosage: STOPPED 2-3 MONTHS AGO AFTER 8 WEEKS OF THERAPY RESTARTED AT 2MG PER DAY ON 01-SEP-2008
  2. ABILIFY [Suspect]
     Indication: PANIC ATTACK
     Dosage: STOPPED 2-3 MONTHS AGO AFTER 8 WEEKS OF THERAPY RESTARTED AT 2MG PER DAY ON 01-SEP-2008
  3. XANAX [Concomitant]
  4. OMEPRAZOLE [Concomitant]
  5. LIPITOR [Concomitant]
  6. ASPIRIN [Concomitant]
  7. CALCIUM [Concomitant]

REACTIONS (1)
  - TREMOR [None]
